FAERS Safety Report 14282662 (Version 2)
Quarter: 2017Q4

REPORT INFORMATION
  Report Type: Spontaneous
  Country: US (occurrence: US)
  Receive Date: 20171213
  Receipt Date: 20171218
  Transmission Date: 20180321
  Serious: Yes (Other)
  Sender: FDA-Public Use
  Company Number: US-JNJFOC-20171205735

PATIENT
  Age: 77 Year
  Sex: Female

DRUGS (2)
  1. XARELTO [Suspect]
     Active Substance: RIVAROXABAN
     Indication: TRANSIENT ISCHAEMIC ATTACK
     Route: 048
  2. MIRTAZAPINE. [Suspect]
     Active Substance: MIRTAZAPINE
     Indication: NEUROPATHY PERIPHERAL
     Route: 065

REACTIONS (8)
  - Mouth haemorrhage [Unknown]
  - Tooth discolouration [Unknown]
  - Glossodynia [Unknown]
  - Arrhythmia [Unknown]
  - Gingival pain [Unknown]
  - Haemorrhagic diathesis [Unknown]
  - Drug interaction [Unknown]
  - Neuropathy peripheral [Unknown]
